FAERS Safety Report 16852641 (Version 2)
Quarter: 2020Q3

REPORT INFORMATION
  Report Type: Spontaneous
  Country: US (occurrence: US)
  Receive Date: 20190925
  Receipt Date: 20200831
  Transmission Date: 20201102
  Serious: Yes (Death, Other)
  Sender: FDA-Public Use
  Company Number: US-GILEAD-2019-0429591

PATIENT
  Age: 64 Year
  Sex: Female

DRUGS (30)
  1. TRUVADA [Suspect]
     Active Substance: EMTRICITABINE\TENOFOVIR DISOPROXIL FUMARATE
     Indication: HIV INFECTION
     Dosage: UNK
     Route: 048
     Dates: start: 2011, end: 2018
  2. WARFARIN [Concomitant]
     Active Substance: WARFARIN
  3. DULOXETINE. [Concomitant]
     Active Substance: DULOXETINE
  4. HYDROCODONE BITARTRATE AND ACETAMINOPHEN [Concomitant]
     Active Substance: ACETAMINOPHEN\HYDROCODONE BITARTRATE
  5. LASIX [Concomitant]
     Active Substance: FUROSEMIDE
  6. LIPITOR [Concomitant]
     Active Substance: ATORVASTATIN CALCIUM
  7. ALEVE [Concomitant]
     Active Substance: NAPROXEN SODIUM
  8. ASPIRIN [ACETYLSALICYLIC ACID] [Concomitant]
     Active Substance: ASPIRIN
  9. FLEXERIL [CEFIXIME] [Concomitant]
     Active Substance: CEFIXIME
  10. GABAPENTIN. [Concomitant]
     Active Substance: GABAPENTIN
  11. NORCO [Concomitant]
     Active Substance: ACETAMINOPHEN\HYDROCODONE BITARTRATE
  12. PRILOSEC [Concomitant]
     Active Substance: OMEPRAZOLE MAGNESIUM
  13. SYMBICORT [Concomitant]
     Active Substance: BUDESONIDE\FORMOTEROL FUMARATE DIHYDRATE
  14. TEMAZEPAM. [Concomitant]
     Active Substance: TEMAZEPAM
  15. ULTRAMED [TRAMADOL HYDROCHLORIDE] [Concomitant]
     Active Substance: TRAMADOL HYDROCHLORIDE
  16. VALIUM [Concomitant]
     Active Substance: DIAZEPAM
  17. TRUVADA [Suspect]
     Active Substance: EMTRICITABINE\TENOFOVIR DISOPROXIL FUMARATE
     Dosage: UNK
     Route: 048
     Dates: start: 20160121, end: 20180419
  18. ALBUTEROL SULFATE. [Concomitant]
     Active Substance: ALBUTEROL SULFATE
  19. AMITRIPTYLINE [Concomitant]
     Active Substance: AMITRIPTYLINE
  20. LIDODERM [Concomitant]
     Active Substance: LIDOCAINE
  21. TRAZODONE [Concomitant]
     Active Substance: TRAZODONE HYDROCHLORIDE
  22. FENTANYL. [Concomitant]
     Active Substance: FENTANYL
  23. RESTORIL [CHLORMEZANONE] [Concomitant]
     Active Substance: CHLORMEZANONE
  24. TRUVADA [Suspect]
     Active Substance: EMTRICITABINE\TENOFOVIR DISOPROXIL FUMARATE
     Dosage: UNK
     Route: 048
     Dates: start: 2012, end: 2018
  25. KALETRA [Concomitant]
     Active Substance: LOPINAVIR\RITONAVIR
     Dosage: UNK
     Dates: start: 20160202, end: 20180419
  26. PROMETHAZINE [Concomitant]
     Active Substance: PROMETHAZINE HYDROCHLORIDE
  27. TRAMADOL HCL [Concomitant]
     Active Substance: TRAMADOL HYDROCHLORIDE
  28. ALPRAZOLAM. [Concomitant]
     Active Substance: ALPRAZOLAM
  29. MEGACE [Concomitant]
     Active Substance: MEGESTROL ACETATE
  30. POTASSIUM CHLORIDE. [Concomitant]
     Active Substance: POTASSIUM CHLORIDE

REACTIONS (12)
  - Spinal operation [Unknown]
  - Death [Fatal]
  - Decreased activity [Unknown]
  - Economic problem [Not Recovered/Not Resolved]
  - Anhedonia [Not Recovered/Not Resolved]
  - Anxiety [Not Recovered/Not Resolved]
  - Hip arthroplasty [Unknown]
  - Osteoporosis [Unknown]
  - Emotional distress [Not Recovered/Not Resolved]
  - Loss of personal independence in daily activities [Unknown]
  - Quality of life decreased [Unknown]
  - Pain [Not Recovered/Not Resolved]

NARRATIVE: CASE EVENT DATE: 20170914
